FAERS Safety Report 7633677-8 (Version None)
Quarter: 2011Q3

REPORT INFORMATION
  Report Type: 
  Country: None (occurrence: None)
  Receive Date: 20110725
  Receipt Date: 20110714
  Transmission Date: 20111222
  Serious: Yes (Hospitalization)
  Sender: FDA-Public Use
  Company Number: HR-GLAXOSMITHKLINE-B0734515A

PATIENT
  Age: 46 Year
  Sex: Female

DRUGS (3)
  1. ARIXTRA [Suspect]
     Indication: PRODUCT USED FOR UNKNOWN INDICATION
     Dosage: 2.5MG PER DAY
     Route: 065
     Dates: start: 20110607, end: 20110611
  2. WARFARIN SODIUM [Suspect]
     Indication: PRODUCT USED FOR UNKNOWN INDICATION
     Dosage: 3MG PER DAY
     Route: 065
     Dates: start: 20110611, end: 20110615
  3. FRAXIPARINE [Suspect]
     Indication: VENOUS THROMBOSIS
     Route: 065
     Dates: start: 20110405, end: 20110607

REACTIONS (4)
  - RASH GENERALISED [None]
  - TACHYCARDIA [None]
  - RASH MACULO-PAPULAR [None]
  - RESTLESSNESS [None]
